FAERS Safety Report 8789630 (Version 1)
Quarter: 2012Q4

REPORT INFORMATION
  Report Type: Spontaneous
  Country: US (occurrence: None)
  Receive Date: 20120910
  Receipt Date: 20120910
  Transmission Date: 20130627
  Serious: No
  Sender: FDA-Public Use
  Company Number: None

PATIENT
  Age: 44 Year
  Sex: Male
  Weight: 81.65 kg

DRUGS (1)
  1. CYMBALTA [Suspect]
     Indication: MAJOR DEPRESSION
     Dates: start: 19980615, end: 20120712

REACTIONS (18)
  - Pancreas transplant [None]
  - Weight increased [None]
  - Drug administration error [None]
  - Suicidal ideation [None]
  - Wrong technique in drug usage process [None]
  - Anxiety [None]
  - Diarrhoea [None]
  - Restlessness [None]
  - Irritability [None]
  - Blood creatinine increased [None]
  - Hypertension [None]
  - Blood cholesterol increased [None]
  - Pancreas transplant rejection [None]
  - Mental disorder [None]
  - Insomnia [None]
  - Asthenia [None]
  - Social avoidant behaviour [None]
  - Drug withdrawal syndrome [None]
